FAERS Safety Report 6068518-6 (Version None)
Quarter: 2009Q1

REPORT INFORMATION
  Report Type: 
  Country: None (occurrence: None)
  Receive Date: 20090206
  Receipt Date: 20090202
  Transmission Date: 20090719
  Serious: Yes (Hospitalization, Other)
  Sender: FDA-Public Use
  Company Number: BR-ASTRAZENECA-2009UW03158

PATIENT
  Age: 87 Year
  Sex: Male

DRUGS (12)
  1. ATACAND [Suspect]
     Indication: HYPERTENSION
     Route: 048
  2. ANGIPRESS CD [Concomitant]
     Route: 048
  3. SERTRALINE [Concomitant]
     Route: 048
  4. LASIX [Concomitant]
     Route: 048
  5. VITAMIN B COMPLEX CAP [Concomitant]
     Route: 048
  6. C VITMAIN [Concomitant]
     Route: 048
  7. ALOPURINOL [Concomitant]
     Route: 048
  8. ANLODIPINE [Concomitant]
     Route: 048
  9. CALTRACT 600 PLUS D [Concomitant]
     Route: 048
  10. SINVASTATIN [Concomitant]
     Route: 048
  11. ERITROMAX [Concomitant]
     Route: 042
  12. CAPOTEN [Concomitant]
     Dosage: PRN
     Route: 048

REACTIONS (3)
  - ANAEMIA [None]
  - BLOOD PRESSURE INCREASED [None]
  - NEPHROLITHIASIS [None]
